FAERS Safety Report 6635626-8 (Version None)
Quarter: 2010Q1

REPORT INFORMATION
  Report Type: 
  Country: None (occurrence: None)
  Receive Date: 20100312
  Receipt Date: 20100312
  Transmission Date: 20100710
  Serious: Yes (Other)
  Sender: FDA-Public Use
  Company Number: None

PATIENT
  Sex: Female
  Weight: 77.1115 kg

DRUGS (2)
  1. WARFARIN SODIUM [Suspect]
     Indication: HYPOCOAGULABLE STATE
     Dosage: 5 MG QHS ORAL 1 MG QHS ORAL
     Route: 048
     Dates: start: 20070101, end: 20070601
  2. WARFARIN SODIUM [Suspect]
     Indication: TRANSIENT ISCHAEMIC ATTACK
     Dosage: 5 MG QHS ORAL 1 MG QHS ORAL
     Route: 048
     Dates: start: 20070101, end: 20070601

REACTIONS (3)
  - BLEEDING TIME ABNORMAL [None]
  - DRUG SPECIFIC ANTIBODY PRESENT [None]
  - INTERNATIONAL NORMALISED RATIO ABNORMAL [None]
